FAERS Safety Report 9004280 (Version 1)
Quarter: 2013Q1

REPORT INFORMATION
  Report Type: Spontaneous
  Country: TH (occurrence: TH)
  Receive Date: 20130108
  Receipt Date: 20130108
  Transmission Date: 20140127
  Serious: Yes (Other)
  Sender: FDA-Public Use
  Company Number: TH-ROCHE-1177264

PATIENT
  Sex: 0

DRUGS (1)
  1. BEVACIZUMAB [Suspect]
     Indication: NEOPLASM MALIGNANT
     Route: 065

REACTIONS (24)
  - Cerebrovascular accident [Unknown]
  - Anaphylactic shock [Unknown]
  - Cardiac arrest [Unknown]
  - Corneal oedema [Unknown]
  - Myocardial infarction [Unknown]
  - Ocular hyperaemia [Unknown]
  - Sepsis [Unknown]
  - Impaired healing [Unknown]
  - Hypertension [Unknown]
  - Proteinuria [Unknown]
  - Pyrexia [Unknown]
  - Hypotension [Unknown]
  - Hyperhidrosis [Unknown]
  - Cyanosis [Unknown]
  - Dyspnoea [Unknown]
  - Haemoptysis [Unknown]
  - Hypersensitivity [Unknown]
  - Palpitations [Unknown]
  - Pruritus [Unknown]
  - Rash [Unknown]
  - Restlessness [Unknown]
  - Thrombocytopenia [Unknown]
  - Deep vein thrombosis [Unknown]
  - Wheezing [Unknown]
